FAERS Safety Report 14312446 (Version 3)
Quarter: 2020Q1

REPORT INFORMATION
  Report Type: Spontaneous
  Country: US (occurrence: US)
  Receive Date: 20171221
  Receipt Date: 20200330
  Transmission Date: 20200409
  Serious: No
  Sender: FDA-Public Use
  Company Number: US-PFIZER INC-2017538488

PATIENT
  Age: 68 Year
  Sex: Female
  Weight: 61.23 kg

DRUGS (3)
  1. XELJANZ XR [Suspect]
     Active Substance: TOFACITINIB CITRATE
     Indication: RHEUMATOID ARTHRITIS
     Dosage: 11 MG, 1X/DAY
     Route: 048
     Dates: start: 2017
  2. XELJANZ XR [Suspect]
     Active Substance: TOFACITINIB CITRATE
     Dosage: 11 MG, UNK
  3. NORTRIPTYLINE [Concomitant]
     Active Substance: NORTRIPTYLINE
     Indication: MIGRAINE
     Dosage: UNK
     Dates: start: 2017

REACTIONS (2)
  - Headache [Unknown]
  - Pain [Unknown]
